FAERS Safety Report 9918968 (Version 1)
Quarter: 2014Q1

REPORT INFORMATION
  Report Type: Spontaneous
  Country: US (occurrence: US)
  Receive Date: 20140224
  Receipt Date: 20140224
  Transmission Date: 20141002
  Serious: No
  Sender: FDA-Public Use
  Company Number: US-BRISTOL-MYERS SQUIBB COMPANY-17370750

PATIENT
  Age: 62 Year
  Sex: Female
  Weight: 95.24 kg

DRUGS (5)
  1. METFORMIN HCL [Suspect]
     Indication: TYPE 2 DIABETES MELLITUS
  2. PROVENTIL INHALER [Concomitant]
  3. PRILOSEC [Concomitant]
  4. LOSARTAN [Concomitant]
  5. PROPRANOLOL [Concomitant]

REACTIONS (1)
  - Liver disorder [Unknown]
